FAERS Safety Report 10793164 (Version 1)
Quarter: 2015Q1

REPORT INFORMATION
  Report Type: Spontaneous
  Country: GB (occurrence: GB)
  Receive Date: 20150213
  Receipt Date: 20150213
  Transmission Date: 20150721
  Serious: Yes (Hospitalization)
  Sender: FDA-Public Use
  Company Number: GB-ACTAVISPR-2015-01698

PATIENT
  Age: 86 Year
  Sex: Female

DRUGS (1)
  1. ACYCLOVIR (UNKNOWN) [Suspect]
     Active Substance: ACYCLOVIR
     Indication: ENDOCARDITIS
     Dosage: UNK, UNKNOWN
     Route: 042
     Dates: start: 201410, end: 201411

REACTIONS (3)
  - Drug hypersensitivity [Recovered/Resolved]
  - Seizure [Recovered/Resolved]
  - Renal failure [Recovered/Resolved]
